FAERS Safety Report 19188776 (Version 2)
Quarter: 2021Q2

REPORT INFORMATION
  Report Type: Spontaneous
  Country: ES (occurrence: ES)
  Receive Date: 20210428
  Receipt Date: 20210630
  Transmission Date: 20210717
  Serious: Yes (Other)
  Sender: FDA-Public Use
  Company Number: ES-SA-2021SA138385

PATIENT

DRUGS (1)
  1. DUPILUMAB [Suspect]
     Active Substance: DUPILUMAB

REACTIONS (1)
  - Syncope [Unknown]
